FAERS Safety Report 6446253-X (Version None)
Quarter: 2009Q4

REPORT INFORMATION
  Report Type: 
  Country: None (occurrence: None)
  Receive Date: 20091119
  Receipt Date: 20091117
  Transmission Date: 20100525
  Serious: Yes (Life-Threatening, Hospitalization)
  Sender: FDA-Public Use
  Company Number: NL-ROCHE-667994

PATIENT
  Weight: 65 kg

DRUGS (11)
  1. CAPECITABINE [Suspect]
     Indication: GASTRIC CANCER
     Dosage: LAST DOSE PRIOR TO EVENT: 11 SEPTEMBER  2009.FROM DAY 1-14 EVERY 3 WEEKS (AS PER PROTOCOL).
     Route: 048
     Dates: start: 20090403
  2. EPIRUBICIN [Suspect]
     Indication: GASTRIC CANCER
     Dosage: AS PER PROTOCOL FREQUENCY EVERY 3 WEEKS IMMEDIATE PRIOR TO THE CISPLATIN.
     Route: 042
     Dates: start: 20090403, end: 20090928
  3. CISPLATIN [Suspect]
     Indication: GASTRIC CANCER
     Dosage: AS PER PROTOCOL FREQUENCY EVERY 3 WEEKS WITH HYDRATION.
     Route: 042
     Dates: start: 20090403, end: 20090928
  4. PREDNISOLONE [Concomitant]
     Route: 048
     Dates: start: 20090920, end: 20090927
  5. ATROVENT [Concomitant]
     Dosage: ROUTE REPORTED AS AROSAL
     Route: 050
     Dates: start: 20090920, end: 20090925
  6. VENTOLIN [Concomitant]
     Dosage: ROUTE REPORTED AS AROSAL
     Route: 050
     Dates: start: 20090101, end: 20090925
  7. SPIRIVA [Concomitant]
  8. ASCAL [Concomitant]
     Dosage: FREQUENCY REPORTED AS 1X1
     Route: 048
     Dates: start: 20090903
  9. SELOKEEN [Concomitant]
     Dosage: FREQUENCY REPORTED AS 1X1
     Route: 048
     Dates: start: 20090903
  10. PLAVIX [Concomitant]
     Dosage: FREQUENCY REPORTED AS 1X1
     Route: 048
     Dates: start: 20090903
  11. CIPROXIN [Concomitant]
     Dosage: FREQUENCY REPORTED AS 2X1
     Dates: start: 20090903

REACTIONS (3)
  - CONDITION AGGRAVATED [None]
  - MALAISE [None]
  - MYOCARDIAL INFARCTION [None]
